FAERS Safety Report 11276832 (Version 1)
Quarter: 2015Q3

REPORT INFORMATION
  Report Type: Spontaneous
  Country: US (occurrence: None)
  Receive Date: 20150715
  Receipt Date: 20150715
  Transmission Date: 20151125
  Serious: No
  Sender: FDA-Public Use
  Company Number: None

PATIENT
  Age: 89 Year
  Sex: Male
  Weight: 72.12 kg

DRUGS (12)
  1. FIBERCON [Suspect]
     Active Substance: CALCIUM POLYCARBOPHIL
     Indication: CONSTIPATION
     Route: 048
     Dates: start: 20150318, end: 20150520
  2. MAGNESIUM [Concomitant]
     Active Substance: MAGNESIUM
  3. VITAMIN D [Concomitant]
     Active Substance: CHOLECALCIFEROL
  4. PROCARDIA [Concomitant]
     Active Substance: NIFEDIPINE
  5. CYMBALTA [Concomitant]
     Active Substance: DULOXETINE HYDROCHLORIDE
  6. PLAVIX [Concomitant]
     Active Substance: CLOPIDOGREL BISULFATE
  7. LIPITOR [Concomitant]
     Active Substance: ATORVASTATIN CALCIUM
  8. POTASSIUM [Concomitant]
     Active Substance: POTASSIUM
  9. FISH OIL [Concomitant]
     Active Substance: FISH OIL
  10. MIRALAX [Concomitant]
     Active Substance: POLYETHYLENE GLYCOL 3350
  11. ASPIRIN. [Concomitant]
     Active Substance: ASPIRIN
  12. ZOCAR [Concomitant]

REACTIONS (2)
  - Product commingling [None]
  - Drug dispensing error [None]

NARRATIVE: CASE EVENT DATE: 20150528
